FAERS Safety Report 9002072 (Version 2)
Quarter: 2013Q1

REPORT INFORMATION
  Report Type: Spontaneous
  Country: HU (occurrence: HU)
  Receive Date: 20130107
  Receipt Date: 20130116
  Transmission Date: 20140127
  Serious: Yes (Hospitalization, Other)
  Sender: FDA-Public Use
  Company Number: HU-AMGEN-HUNSP2012084044

PATIENT
  Age: 41 Year
  Sex: Male

DRUGS (2)
  1. MIMPARA [Suspect]
     Indication: HYPERPARATHYROIDISM SECONDARY
     Dosage: 30 MG, QMO
  2. PARICALCITOL [Concomitant]
     Dosage: 10 MUG, QD

REACTIONS (14)
  - Pathological fracture [Unknown]
  - Brown tumour [Unknown]
  - Hyperparathyroidism tertiary [Unknown]
  - Anaemia [Unknown]
  - Asphyxia [Unknown]
  - Feeling abnormal [Unknown]
  - Osteodystrophy [Unknown]
  - Hypercalcaemia [Unknown]
  - Pelvic deformity [Unknown]
  - Gait disturbance [Unknown]
  - Hypoaesthesia [Unknown]
  - Asthenia [Unknown]
  - Presyncope [Unknown]
  - Nausea [Unknown]
